FAERS Safety Report 8796674 (Version 1)
Quarter: 2012Q4

REPORT INFORMATION
  Report Type: 
  Country: FR (occurrence: FR)
  Receive Date: 20120919
  Receipt Date: 20120919
  Transmission Date: 20130627
  Serious: Yes (Hospitalization)
  Sender: FDA-Public Use
  Company Number: FR-ABBOTT-12P-056-0978622-00

PATIENT
  Age: 66 None
  Sex: Male

DRUGS (4)
  1. HUMIRA [Suspect]
     Indication: SPONDYLITIS
     Dates: start: 20080212, end: 2012
  2. VITAMIN A [Concomitant]
     Indication: PRODUCT USED FOR UNKNOWN INDICATION
  3. LACRYVISC [Concomitant]
     Indication: PRODUCT USED FOR UNKNOWN INDICATION
  4. INDOCID [Concomitant]
     Indication: PRODUCT USED FOR UNKNOWN INDICATION
     Dosage: if pain

REACTIONS (12)
  - Inflammation [Unknown]
  - Infectious pleural effusion [Recovered/Resolved]
  - Pneumonia [Recovered/Resolved]
  - Chest pain [Unknown]
  - Pleural disorder [Unknown]
  - Pleural effusion [Unknown]
  - Inflammation [Unknown]
  - Pleural effusion [Unknown]
  - Bacillus infection [Unknown]
  - Pain [Unknown]
  - Pyrexia [Unknown]
  - Pharyngolaryngeal abscess [Unknown]
